FAERS Safety Report 9306900 (Version 1)
Quarter: 2013Q2

REPORT INFORMATION
  Report Type: Spontaneous
  Country: GB (occurrence: GB)
  Receive Date: 20130523
  Receipt Date: 20130523
  Transmission Date: 20140414
  Serious: Yes (Hospitalization)
  Sender: FDA-Public Use
  Company Number: PHHY2013GB048985

PATIENT
  Age: 2 Year
  Sex: Male

DRUGS (1)
  1. CLARITHROMYCIN [Suspect]
     Route: 048

REACTIONS (2)
  - Oral discomfort [Unknown]
  - Vomiting [Unknown]
